FAERS Safety Report 5089531-1 (Version None)
Quarter: 2006Q3

REPORT INFORMATION
  Report Type: 
  Country: None (occurrence: None)
  Receive Date: 20060727
  Receipt Date: 20060611
  Transmission Date: 20061208
  Serious: Yes (Other)
  Sender: FDA-Public Use
  Company Number: 2006074430

PATIENT
  Age: 69 Year
  Sex: Female

DRUGS (3)
  1. LYRICA [Suspect]
     Indication: SCIATICA
     Dosage: 400 MG (100 MG, 4 IN 1 D)
     Dates: start: 20060412, end: 20060606
  2. OXYCODONE HCL [Suspect]
     Indication: SCIATICA
     Dosage: 4 IN 1 D
     Dates: start: 20060401, end: 20060606
  3. VICODIN [Concomitant]

REACTIONS (4)
  - ABDOMINAL PAIN UPPER [None]
  - DRUG WITHDRAWAL SYNDROME [None]
  - FEELING ABNORMAL [None]
  - INSOMNIA [None]
